FAERS Safety Report 20627462 (Version 1)
Quarter: 2022Q1

REPORT INFORMATION
  Report Type: Spontaneous
  Country: US (occurrence: None)
  Receive Date: 20220322
  Receipt Date: 20220322
  Transmission Date: 20220423
  Serious: Yes (Life-Threatening, Other)
  Sender: FDA-Public Use
  Company Number: None

PATIENT
  Age: 47 Year
  Sex: Male
  Weight: 85.5 kg

DRUGS (1)
  1. BUPRENORPHINE AND NALOXONE SUBLINGUAL FILM [Suspect]
     Active Substance: BUPRENORPHINE HYDROCHLORIDE\NALOXONE HYDROCHLORIDE
     Indication: Drug use disorder
     Dosage: OTHER QUANTITY : 1 SUBLINGUAL FILM;?FREQUENCY : TWICE A DAY;?
     Route: 060
     Dates: start: 20220301, end: 20220317

REACTIONS (5)
  - Myasthenia gravis [None]
  - Drug withdrawal syndrome [None]
  - Product substitution issue [None]
  - Product substitution issue [None]
  - Poor quality sleep [None]

NARRATIVE: CASE EVENT DATE: 20220308
